FAERS Safety Report 25045168 (Version 1)
Quarter: 2025Q1

REPORT INFORMATION
  Report Type: Spontaneous
  Country: US (occurrence: US)
  Receive Date: 20250306
  Receipt Date: 20250306
  Transmission Date: 20250409
  Serious: Yes (Hospitalization, Other)
  Sender: CSL BEHRING
  Company Number: US-BEH-2025198061

PATIENT
  Sex: Female

DRUGS (2)
  1. HIZENTRA [Suspect]
     Active Substance: HUMAN IMMUNOGLOBULIN G
     Indication: Selective IgG subclass deficiency
     Dosage: 36 G EVERY 2 WEEKS (STRENGTH: 0.2GM/ML), 2 GM TOTAL
     Route: 058
     Dates: start: 202409
  2. HIZENTRA [Suspect]
     Active Substance: HUMAN IMMUNOGLOBULIN G
     Dosage: 36 G EVERY 2 WEEKS (STRENGTH: 0.2GM/ML), 10 GM TOTAL
     Route: 058
     Dates: start: 202409

REACTIONS (1)
  - Pneumonia [Unknown]
